FAERS Safety Report 7226770-5 (Version None)
Quarter: 2011Q1

REPORT INFORMATION
  Report Type: 
  Country: None (occurrence: None)
  Receive Date: 20110110
  Receipt Date: 20110110
  Transmission Date: 20110831
  Serious: No
  Sender: FDA-Public Use
  Company Number: None

PATIENT
  Age: 68 Year
  Sex: Male
  Weight: 92.7 kg

DRUGS (4)
  1. NITROGLYCERIN [Suspect]
     Indication: CHEST PAIN
     Dosage: 0.4 MG PRN NASAL
     Route: 045
     Dates: start: 20101002, end: 20101005
  2. NITROGLYCERIN [Suspect]
     Indication: PAIN
     Dosage: 0.4 MG PRN NASAL
     Route: 045
     Dates: start: 20101002, end: 20101005
  3. FOSINOPRIL SODIUM [Suspect]
     Indication: CARDIAC FAILURE CONGESTIVE
     Dosage: 10 MG EVERY DAY PO
     Route: 048
     Dates: start: 20050930, end: 20101005
  4. FOSINOPRIL SODIUM [Suspect]
     Indication: HYPERTENSION
     Dosage: 10 MG EVERY DAY PO
     Route: 048
     Dates: start: 20050930, end: 20101005

REACTIONS (5)
  - PRURITUS [None]
  - BACK PAIN [None]
  - URTICARIA [None]
  - ANGIOEDEMA [None]
  - HYPERHIDROSIS [None]
